FAERS Safety Report 6263785-8 (Version None)
Quarter: 2009Q3

REPORT INFORMATION
  Report Type: 
  Country: None (occurrence: None)
  Receive Date: 20090707
  Receipt Date: 20090707
  Transmission Date: 20100115
  Serious: Yes (Other)
  Sender: FDA-Public Use
  Company Number: None

PATIENT
  Age: 31 Year
  Sex: Female
  Weight: 74.8435 kg

DRUGS (1)
  1. TOPIRAMATE [Suspect]
     Indication: AFFECTIVE DISORDER
     Dosage: 100 MG 2 TIMES A DAY PO
     Route: 048
     Dates: start: 20090616, end: 20090709

REACTIONS (9)
  - APATHY [None]
  - CRYING [None]
  - DYSPEPSIA [None]
  - EMOTIONAL DISORDER [None]
  - HEADACHE [None]
  - MOOD SWINGS [None]
  - NIGHTMARE [None]
  - PARANOIA [None]
  - PRODUCT SUBSTITUTION ISSUE [None]
